FAERS Safety Report 4849315-3 (Version None)
Quarter: 2005Q4

REPORT INFORMATION
  Report Type: 
  Country: None (occurrence: None)
  Receive Date: 20051207
  Receipt Date: 20051125
  Transmission Date: 20060501
  Serious: Yes (Hospitalization)
  Sender: FDA-Public Use
  Company Number: 2005162821

PATIENT
  Sex: Male

DRUGS (3)
  1. TIKOSYN [Suspect]
     Indication: ILL-DEFINED DISORDER
     Dosage: 0.25 MCG (0.125 MCG, INTERVAL: EVERY DAY: FREQUENCY: BID), ORAL
     Route: 048
  2. ERYTHROMYCIN [Suspect]
     Indication: ILL-DEFINED DISORDER
  3. OMNICEF [Suspect]
     Indication: ILL-DEFINED DISORDER

REACTIONS (1)
  - PNEUMONIA [None]
